FAERS Safety Report 4407786-0 (Version None)
Quarter: 2004Q3

REPORT INFORMATION
  Report Type: 
  Country: None (occurrence: None)
  Receive Date: 20040721
  Receipt Date: 20040712
  Transmission Date: 20050211
  Serious: Yes (Other)
  Sender: FDA-Public Use
  Company Number: 2004-07-0099

PATIENT
  Age: 50 Year
  Sex: Male

DRUGS (1)
  1. AERIUS (DESLORATADINE) TABLET ' LIKE CLARINEX' [Suspect]
     Indication: ECZEMA
     Dosage: 5 MG QD ORAL
     Route: 048
     Dates: start: 20040604, end: 20040606

REACTIONS (2)
  - ECZEMA [None]
  - PURPURA [None]
